FAERS Safety Report 5368292-2 (Version None)
Quarter: 2007Q2

REPORT INFORMATION
  Report Type: 
  Country: None (occurrence: None)
  Receive Date: 20070619
  Receipt Date: 20070605
  Transmission Date: 20071010
  Serious: Yes (Life-Threatening)
  Sender: FDA-Public Use
  Company Number: 100#03#2007-02106

PATIENT
  Age: 59 Year
  Sex: Female

DRUGS (6)
  1. CIPROFLOXACIN [Suspect]
     Indication: CHOLECYSTITIS
     Dosage: 500 MG, ORAL
     Route: 048
     Dates: start: 20070511, end: 20070511
  2. GENTAMICIN [Suspect]
     Indication: CHOLECYSTITIS
     Dosage: 320 MG, INTRAVENOUS (NOT OTHERWISE SPECIFIED)
     Route: 042
     Dates: start: 20070512, end: 20070513
  3. LOSARTAN  (LOSARTAN ) (LOSARTAN ) [Suspect]
     Indication: HYPERTENSION
     Dosage: 50 MG, ORAL
     Route: 048
     Dates: end: 20070518
  4. ORAMORPH (MORPHINE SULFATE) (MORPHINE ANHYDROUS, MORPHINE SULPHATE) [Suspect]
     Indication: PAIN
     Dosage: ORAL
     Route: 048
     Dates: start: 20070512, end: 20070515
  5. FERROUS SULPHATE (FERROUS SULFATE) [Concomitant]
  6. THYROXINE (LEVOTHYROXINE SODIUM)  (THYROXINE) [Concomitant]

REACTIONS (6)
  - ANAPHYLACTIC REACTION [None]
  - ANGIOEDEMA [None]
  - DYSPNOEA [None]
  - HEPATITIS [None]
  - RASH PRURITIC [None]
  - SWOLLEN TONGUE [None]
